FAERS Safety Report 9497464 (Version 1)
Quarter: 2013Q3

REPORT INFORMATION
  Report Type: Spontaneous
  Country: US (occurrence: US)
  Receive Date: 20130904
  Receipt Date: 20130904
  Transmission Date: 20140515
  Serious: No
  Sender: FDA-Public Use
  Company Number: US-AMGEN-USASP2013056574

PATIENT
  Age: 59 Year
  Sex: 0

DRUGS (3)
  1. ENBREL [Suspect]
     Indication: PRODUCT USED FOR UNKNOWN INDICATION
     Dosage: UNK
     Route: 065
  2. FOLIC ACID [Concomitant]
     Dosage: UNK
  3. METHOTREXATE [Concomitant]
     Dosage: UNK

REACTIONS (7)
  - Local swelling [Unknown]
  - Vitamin D decreased [Unknown]
  - Hepatic enzyme increased [Unknown]
  - Immune system disorder [Unknown]
  - Stomatitis [Unknown]
  - Nasopharyngitis [Unknown]
  - Sinusitis [Unknown]
